FAERS Safety Report 17276695 (Version 1)
Quarter: 2020Q1

REPORT INFORMATION
  Report Type: Spontaneous
  Country: US (occurrence: US)
  Receive Date: 20200115
  Receipt Date: 20200115
  Transmission Date: 20200409
  Serious: No
  Sender: FDA-Public Use
  Company Number: None

PATIENT
  Age: 76 Year
  Sex: Female

DRUGS (7)
  1. ZOLOFT TAB 100 MG [Concomitant]
  2. REPATHA [Suspect]
     Active Substance: EVOLOCUMAB
     Indication: HYPERCHOLESTEROLAEMIA
     Dosage: ?          OTHER FREQUENCY:EVERY 2 WEEKS;?
     Route: 058
     Dates: start: 20180307
  3. SEROQUEL TAB 100 MG [Concomitant]
  4. METRONIDAZOL TAB 500 MG [Concomitant]
  5. TOPROL XL TAB 225 MG [Concomitant]
  6. CYCLOBENAZEPRINE TAB 10 MG [Concomitant]
  7. FAMOTIDINE TAB 20 MG [Concomitant]

REACTIONS (2)
  - Aneurysm [None]
  - Therapy cessation [None]
